FAERS Safety Report 21008620 (Version 1)
Quarter: 2022Q2

REPORT INFORMATION
  Report Type: Spontaneous
  Country: JP (occurrence: JP)
  Receive Date: 20220627
  Receipt Date: 20220627
  Transmission Date: 20220720
  Serious: Yes (Other)
  Sender: FDA-Public Use
  Company Number: JP-STRIDES ARCOLAB LIMITED-2022SP007704

PATIENT
  Age: 11 Day
  Sex: Female

DRUGS (14)
  1. HYDROCORTISONE [Suspect]
     Active Substance: HYDROCORTISONE
     Indication: 21-hydroxylase deficiency
     Dosage: 100 MILLIGRAM/SQ. METER, DAILY (INTRAVENOUS INFUSION) (INJECTION)
     Route: 042
  2. HYDROCORTISONE [Suspect]
     Active Substance: HYDROCORTISONE
     Dosage: 60 MILLIGRAM/SQ. METER, DAILY
     Route: 048
  3. HYDROCORTISONE [Suspect]
     Active Substance: HYDROCORTISONE
     Dosage: 100 MILLIGRAM/SQ. METER, DAILY (INTRAVENOUS INFUSION)
     Route: 042
  4. HYDROCORTISONE [Suspect]
     Active Substance: HYDROCORTISONE
     Dosage: 75 MILLIGRAM/SQ. METER, DAILY (INTRAVENOUS INFUSION) (INJECTION)
     Route: 042
  5. HYDROCORTISONE [Suspect]
     Active Substance: HYDROCORTISONE
     Dosage: 75 MILLIGRAM/SQ. METER, DAILY
     Route: 048
  6. HYDROCORTISONE [Suspect]
     Active Substance: HYDROCORTISONE
     Dosage: 60 MILLIGRAM/SQ. METER, DAILY
     Route: 048
  7. HYDROCORTISONE [Suspect]
     Active Substance: HYDROCORTISONE
     Dosage: 45 MILLIGRAM/SQ. METER, DAILY
     Route: 048
  8. SODIUM CHLORIDE [Suspect]
     Active Substance: SODIUM CHLORIDE
     Indication: 21-hydroxylase deficiency
     Dosage: UNK, (INTRAVENOUS INFUSION) (INJECTION)
     Route: 042
  9. SODIUM CHLORIDE [Suspect]
     Active Substance: SODIUM CHLORIDE
     Dosage: 1 GRAM, DAILY
     Route: 048
  10. SODIUM POLYSTYRENE SULFONATE [Concomitant]
     Active Substance: SODIUM POLYSTYRENE SULFONATE
     Indication: Hyperkalaemia
     Dosage: 1 GRAM PER KILOGRAM, DAILY
     Route: 048
  11. FLUDROCORTISONE [Concomitant]
     Active Substance: FLUDROCORTISONE
     Indication: 21-hydroxylase deficiency
     Dosage: 0.2 MILLIGRAM, DAILY
     Route: 048
  12. FLUDROCORTISONE [Concomitant]
     Active Substance: FLUDROCORTISONE
     Dosage: 0.4 MILLIGRAM, DAILY
     Route: 048
  13. FLUDROCORTISONE [Concomitant]
     Active Substance: FLUDROCORTISONE
     Dosage: 0.6 MILLIGRAM, DAILY
     Route: 048
  14. FLUDROCORTISONE [Concomitant]
     Active Substance: FLUDROCORTISONE
     Dosage: 0.1 MILLIGRAM, DAILY
     Route: 065

REACTIONS (2)
  - Adrenocortical insufficiency acute [Recovered/Resolved]
  - Drug ineffective for unapproved indication [Unknown]
